FAERS Safety Report 11911743 (Version 1)
Quarter: 2016Q1

REPORT INFORMATION
  Report Type: Spontaneous
  Country: US (occurrence: US)
  Receive Date: 20160112
  Receipt Date: 20160112
  Transmission Date: 20160526
  Serious: Yes (Hospitalization)
  Sender: FDA-Public Use
  Company Number: US-IMPAX LABORATORIES, INC-2015-IPXL-01350

PATIENT
  Age: 48 Year
  Sex: Male

DRUGS (2)
  1. LORAZEPAM. [Concomitant]
     Active Substance: LORAZEPAM
     Indication: GENERALISED TONIC-CLONIC SEIZURE
     Dosage: 4 MG, UNK
     Route: 042
  2. PHENYTOIN CHEWABLE [Suspect]
     Active Substance: PHENYTOIN
     Indication: GENERALISED TONIC-CLONIC SEIZURE
     Dosage: LOAD OF 2300 MG (20 MG/KG)
     Route: 042

REACTIONS (3)
  - Necrosis [Unknown]
  - Purple glove syndrome [Unknown]
  - Ischaemia [Unknown]
